FAERS Safety Report 24917612 (Version 1)
Quarter: 2025Q1

REPORT INFORMATION
  Report Type: Spontaneous
  Country: US (occurrence: US)
  Receive Date: 20250203
  Receipt Date: 20250203
  Transmission Date: 20250408
  Serious: No
  Sender: SANOFI AVENTIS
  Company Number: US-SA-2025SA031228

PATIENT
  Sex: Female
  Weight: 104.78 kg

DRUGS (2)
  1. REZUROCK [Suspect]
     Active Substance: BELUMOSUDIL
     Indication: Graft versus host disease
     Dosage: 250 MG, QD
     Route: 048
  2. TIBSOVO [Concomitant]
     Active Substance: IVOSIDENIB
     Indication: Graft versus host disease
     Dosage: 250 MG, QD
     Route: 048

REACTIONS (1)
  - Incorrect dose administered [Unknown]
